FAERS Safety Report 5310069-8 (Version None)
Quarter: 2007Q2

REPORT INFORMATION
  Report Type: 
  Country: None (occurrence: None)
  Receive Date: 20070427
  Receipt Date: 20070419
  Transmission Date: 20071010
  Serious: Yes (Death, Other)
  Sender: FDA-Public Use
  Company Number: GB-GLAXOSMITHKLINE-B0468224A

PATIENT
  Sex: Male

DRUGS (9)
  1. AMOXICILLIN + CLAVULANATE POTASSIUM [Suspect]
     Indication: LOWER RESPIRATORY TRACT INFECTION
     Route: 065
     Dates: start: 20070108, end: 20070116
  2. ASPIRIN [Concomitant]
     Indication: ACUTE CORONARY SYNDROME
  3. ISOSORBIDE MONONITRATE [Concomitant]
     Indication: ACUTE CORONARY SYNDROME
  4. LANSOPRAZOLE [Concomitant]
     Indication: PROPHYLAXIS
  5. MIRTAZAPINE [Concomitant]
     Dates: start: 20070117, end: 20070125
  6. NYSTATIN [Concomitant]
     Dates: start: 20070118, end: 20070125
  7. QUETIAPINE FUMARATE [Concomitant]
     Dates: start: 20070117, end: 20070125
  8. SIMVASTATIN [Concomitant]
     Indication: ACUTE CORONARY SYNDROME
  9. TOLTERODINE [Concomitant]

REACTIONS (4)
  - ASTHENIA [None]
  - DIARRHOEA [None]
  - LETHARGY [None]
  - ORAL INTAKE REDUCED [None]
